FAERS Safety Report 5545923-5 (Version None)
Quarter: 2007Q4

REPORT INFORMATION
  Report Type: 
  Country: None (occurrence: None)
  Receive Date: 20071211
  Receipt Date: 20071012
  Transmission Date: 20080405
  Serious: No
  Sender: FDA-Public Use
  Company Number: US-ASTRAZENECA-2007UW23751

PATIENT
  Age: 35 Year
  Sex: Male

DRUGS (3)
  1. SYMBICORT [Suspect]
     Indication: ASTHMA
     Dosage: 160/4.5 UG 2 PUFFS BID
     Route: 055
     Dates: start: 20070901
  2. ALBUTEROL [Concomitant]
  3. AMOX CLAVULANATE [Concomitant]

REACTIONS (2)
  - ILL-DEFINED DISORDER [None]
  - TONSILLAR HYPERTROPHY [None]
